FAERS Safety Report 19920255 (Version 5)
Quarter: 2021Q4

REPORT INFORMATION
  Report Type: Spontaneous
  Country: ES (occurrence: None)
  Receive Date: 20211005
  Receipt Date: 20211117
  Transmission Date: 20220303
  Serious: Yes (Death, Life-Threatening, Hospitalization, Other)
  Sender: FDA-Public Use
  Company Number: 2021A758012

PATIENT
  Sex: Female

DRUGS (3)
  1. OLAPARIB [Interacting]
     Active Substance: OLAPARIB
     Indication: Ovarian cancer
     Dosage: FULL DOSES
     Route: 048
     Dates: start: 202003, end: 20200423
  2. OLAPARIB [Interacting]
     Active Substance: OLAPARIB
     Indication: BRCA1 gene mutation
     Dosage: FULL DOSES
     Route: 048
     Dates: start: 202003, end: 20200423
  3. COMIRNATY [Interacting]
     Active Substance: TOZINAMERAN
     Indication: COVID-19 immunisation
     Dosage: SECOND DOSE, SINGLE ONCE/SINGLE ADMINISTRATION
     Route: 065
     Dates: start: 20200414, end: 20200414

REACTIONS (6)
  - Drug interaction [Fatal]
  - Myelodysplastic syndrome [Not Recovered/Not Resolved]
  - Sepsis [Unknown]
  - Terminal state [Unknown]
  - Pancytopenia [Unknown]
  - Fatigue [Unknown]

NARRATIVE: CASE EVENT DATE: 20200414
